FAERS Safety Report 10338878 (Version 1)
Quarter: 2014Q3

REPORT INFORMATION
  Report Type: Spontaneous
  Country: US (occurrence: None)
  Receive Date: 20140723
  Receipt Date: 20140723
  Transmission Date: 20150326
  Serious: Yes (Hospitalization)
  Sender: FDA-Public Use
  Company Number: None

PATIENT
  Age: 65 Year
  Sex: Male
  Weight: 115 kg

DRUGS (2)
  1. SOFOSBUVIR [Suspect]
     Active Substance: SOFOSBUVIR
     Indication: HEPATITIS C
     Route: 048
     Dates: start: 20140524, end: 20140702
  2. RIBAVIRIN. [Suspect]
     Active Substance: RIBAVIRIN
     Indication: HEPATITIS C
     Route: 048
     Dates: start: 20140524, end: 20140702

REACTIONS (7)
  - Abdominal pain [None]
  - Klebsiella bacteraemia [None]
  - Renal failure acute [None]
  - Oesophageal candidiasis [None]
  - Disseminated intravascular coagulation [None]
  - Septic shock [None]
  - Metabolic encephalopathy [None]

NARRATIVE: CASE EVENT DATE: 20140702
